FAERS Safety Report 6846345-7 (Version None)
Quarter: 2010Q3

REPORT INFORMATION
  Report Type: 
  Country: None (occurrence: None)
  Receive Date: 20100715
  Receipt Date: 20070913
  Transmission Date: 20110219
  Serious: Yes (Other)
  Sender: FDA-Public Use
  Company Number: US-PFIZER INC-2007078525

PATIENT
  Sex: Female
  Weight: 45.5 kg

DRUGS (7)
  1. CHANTIX [Suspect]
     Indication: SMOKING CESSATION THERAPY
     Dates: start: 20070905
  2. IBANDRONATE SODIUM [Concomitant]
  3. ACIPHEX [Concomitant]
  4. CRESTOR [Concomitant]
  5. CELEXA [Concomitant]
  6. HYOSCYAMINE [Concomitant]
  7. VITAMINS [Concomitant]

REACTIONS (4)
  - DIZZINESS [None]
  - LETHARGY [None]
  - SENSATION OF HEAVINESS [None]
  - SLEEP DISORDER [None]
